FAERS Safety Report 18528287 (Version 2)
Quarter: 2021Q2

REPORT INFORMATION
  Report Type: Spontaneous
  Country: US (occurrence: US)
  Receive Date: 20201120
  Receipt Date: 20210513
  Transmission Date: 20210717
  Serious: No
  Sender: FDA-Public Use
  Company Number: US-PFIZER INC-2020457917

PATIENT
  Age: 57 Year
  Sex: Female

DRUGS (1)
  1. LYRICA [Suspect]
     Active Substance: PREGABALIN
     Dosage: 900 MG, DAILY (2 CAPSULE(S) AS DIRECTED TAKE TWO IN AM AND ONE IN PM)

REACTIONS (2)
  - Amnesia [Unknown]
  - Prescribed overdose [Unknown]
